FAERS Safety Report 14888810 (Version 1)
Quarter: 2018Q2

REPORT INFORMATION
  Report Type: Spontaneous
  Country: DE (occurrence: DE)
  Receive Date: 20180513
  Receipt Date: 20180513
  Transmission Date: 20180711
  Serious: Yes (Hospitalization)
  Sender: FDA-Public Use
  Company Number: DE-AMGEN-DEUSP2018062503

PATIENT
  Age: 79 Year
  Sex: Female
  Weight: 72 kg

DRUGS (9)
  1. ATORVASTATIN [Concomitant]
     Active Substance: ATORVASTATIN
     Dosage: 20 MG, QD, 0-0-1-0, TABLET
     Route: 048
  2. PANTOPRAZOLE [Concomitant]
     Active Substance: PANTOPRAZOLE
     Dosage: 40 MG,QD, 1-0-0-0, TABLET
     Route: 048
  3. CALCITRIOL. [Concomitant]
     Active Substance: CALCITRIOL
     Dosage: 0.25 MUG, QD, 1-0-0-0, TABLET
     Route: 048
  4. METOPROLOL. [Concomitant]
     Active Substance: METOPROLOL
     Dosage: 47.5 MG, BID, 1-0-1-0, TABLET
     Route: 048
  5. CALCIUM [Concomitant]
     Active Substance: CALCIUM
     Dosage: 600|400 IE, QD, 1-0-0-0, TABLET
     Route: 048
  6. L THYROX [Concomitant]
     Dosage: 100 MUG, QD,1-0-0-0, TABLET
     Route: 048
  7. ASPIRIN. [Concomitant]
     Active Substance: ASPIRIN
     Dosage: 100 MG, 1-0-0-0, TABLET
     Route: 048
  8. PROLIA [Suspect]
     Active Substance: DENOSUMAB
     Indication: OSTEOPOROSIS
     Dosage: 60 MG, UNK
     Route: 058
  9. ENALAPRIL [Concomitant]
     Active Substance: ENALAPRIL
     Dosage: 25 MG, QD, 0-0-1-0, TABLET
     Route: 048

REACTIONS (5)
  - Tetany [Unknown]
  - Drug prescribing error [Unknown]
  - Medication monitoring error [Unknown]
  - Confusional state [Unknown]
  - Hypocalcaemia [Unknown]
